FAERS Safety Report 26052959 (Version 2)
Quarter: 2025Q4

REPORT INFORMATION
  Report Type: Spontaneous
  Country: JP (occurrence: JP)
  Receive Date: 20251117
  Receipt Date: 20251119
  Transmission Date: 20260118
  Serious: Yes (Other)
  Sender: MERCK SHARP & DOHME LLC
  Company Number: JP-009507513-2350243

PATIENT
  Age: 73 Year
  Sex: Male

DRUGS (3)
  1. KEYTRUDA [Suspect]
     Active Substance: PEMBROLIZUMAB
     Indication: Head and neck cancer
     Route: 065
     Dates: start: 20211029
  2. KEYTRUDA [Suspect]
     Active Substance: PEMBROLIZUMAB
     Indication: Head and neck cancer
     Route: 065
     Dates: start: 20231016, end: 20231122
  3. KEYTRUDA [Suspect]
     Active Substance: PEMBROLIZUMAB
     Indication: Head and neck cancer
     Route: 065
     Dates: start: 20250619

REACTIONS (7)
  - Malignant neoplasm progression [Unknown]
  - Immune-mediated arthritis [Unknown]
  - Therapy partial responder [Unknown]
  - Malignant neoplasm progression [Unknown]
  - Compression fracture [Unknown]
  - Immune-mediated dermatitis [Unknown]
  - Malignant neoplasm progression [Unknown]

NARRATIVE: CASE EVENT DATE: 20220825
